FAERS Safety Report 23123184 (Version 4)
Quarter: 2024Q1

REPORT INFORMATION
  Report Type: Spontaneous
  Country: US (occurrence: US)
  Receive Date: 20231030
  Receipt Date: 20240119
  Transmission Date: 20240409
  Serious: No
  Sender: FDA-Public Use
  Company Number: US-GSKCCFUS-Case-01837653_AE-102724

PATIENT
  Sex: Male

DRUGS (1)
  1. TRELEGY ELLIPTA [Suspect]
     Active Substance: FLUTICASONE FUROATE\UMECLIDINIUM BROMIDE\VILANTEROL TRIFENATATE
     Indication: Product used for unknown indication
     Dosage: UNK, 100/62.5/25 MCG 30D
     Route: 055

REACTIONS (3)
  - Inability to afford medication [Unknown]
  - Product dose omission issue [Unknown]
  - Product complaint [Unknown]
